FAERS Safety Report 7652075-4 (Version None)
Quarter: 2011Q3

REPORT INFORMATION
  Report Type: 
  Country: None (occurrence: None)
  Receive Date: 20110803
  Receipt Date: 20110728
  Transmission Date: 20111222
  Serious: No
  Sender: FDA-Public Use
  Company Number: US-BIOGENIDEC-2011BI028247

PATIENT
  Age: 61 Year
  Sex: Female

DRUGS (4)
  1. AVONEX [Suspect]
     Indication: MULTIPLE SCLEROSIS
     Route: 030
     Dates: start: 20110711
  2. AVONEX [Suspect]
     Route: 030
     Dates: start: 20090501, end: 20110601
  3. OXYBUTININ [Concomitant]
     Indication: BLADDER DISORDER
  4. TEKTURNA [Concomitant]
     Indication: URINARY INCONTINENCE

REACTIONS (4)
  - GLUCOSE TOLERANCE IMPAIRED [None]
  - PROGRESSIVE RELAPSING MULTIPLE SCLEROSIS [None]
  - VITAMIN D DEFICIENCY [None]
  - SPINAL DISORDER [None]
